FAERS Safety Report 25915180 (Version 1)
Quarter: 2025Q4

REPORT INFORMATION
  Report Type: Spontaneous
  Country: CN (occurrence: CN)
  Receive Date: 20251013
  Receipt Date: 20251013
  Transmission Date: 20260117
  Serious: Yes (Life-Threatening)
  Sender: PFIZER
  Company Number: CN-PFIZER INC-PV202500120419

PATIENT
  Age: 27 Year
  Sex: Female

DRUGS (12)
  1. PIPERACILLIN SODIUM\TAZOBACTAM SODIUM [Suspect]
     Active Substance: PIPERACILLIN SODIUM\TAZOBACTAM SODIUM
     Indication: Encephalitis Japanese B
     Dosage: 4.5 G, 3X/DAY (Q8H)
     Route: 042
     Dates: start: 202410
  2. PIPERACILLIN SODIUM\TAZOBACTAM SODIUM [Suspect]
     Active Substance: PIPERACILLIN SODIUM\TAZOBACTAM SODIUM
     Indication: Antibiotic therapy
  3. MANNITOL [Suspect]
     Active Substance: MANNITOL
     Indication: CSF pressure
     Dosage: 125 ML, 3X/DAY (Q8H)
     Route: 042
     Dates: start: 202410
  4. MANNITOL [Suspect]
     Active Substance: MANNITOL
     Dosage: 125 ML, 4X/DAY (EVERY 6  H)
     Route: 042
     Dates: start: 202410
  5. LACOSAMIDE [Suspect]
     Active Substance: LACOSAMIDE
     Indication: Epilepsy
     Dosage: 100 MG, 2X/DAY
     Route: 042
     Dates: start: 202411
  6. ACYCLOVIR [Concomitant]
     Active Substance: ACYCLOVIR
     Indication: Evidence based treatment
     Dosage: 500 MG, 3X/DAY (Q8H)
     Route: 042
     Dates: start: 202410
  7. ACYCLOVIR [Concomitant]
     Active Substance: ACYCLOVIR
     Indication: Antiviral treatment
  8. ILAPRAZOLE [Concomitant]
     Active Substance: ILAPRAZOLE
     Dosage: UNK
     Dates: start: 202410
  9. SUCRALFATE [Concomitant]
     Active Substance: SUCRALFATE
     Dosage: VIA NASOGASTRIC TUBE
     Dates: start: 202410
  10. DEXMEDETOMIDINE [Concomitant]
     Active Substance: DEXMEDETOMIDINE
     Indication: Epilepsy
     Dosage: UNK
     Dates: start: 202411
  11. PHENOBARBITAL [Concomitant]
     Active Substance: PHENOBARBITAL
     Indication: Epilepsy
     Dosage: UNK
     Dates: start: 20241104
  12. OXYTOCIN [Concomitant]
     Active Substance: OXYTOCIN
     Indication: Muscle contracture
     Dosage: AUGMENTATION OVER A THREE-DAY PERIOD

REACTIONS (1)
  - Drug ineffective [Unknown]

NARRATIVE: CASE EVENT DATE: 20240101
